FAERS Safety Report 5136760-4 (Version None)
Quarter: 2006Q4

REPORT INFORMATION
  Report Type: 
  Country: None (occurrence: None)
  Receive Date: 20061023
  Receipt Date: 20061009
  Transmission Date: 20070319
  Serious: Yes (Hospitalization, Other)
  Sender: FDA-Public Use
  Company Number: 2006125611

PATIENT
  Sex: Female

DRUGS (15)
  1. LYRICA [Suspect]
     Indication: NEUROPATHY PERIPHERAL
     Dosage: 150 MG (50 MG, 3 IN 1 D)
     Dates: start: 20060901, end: 20061003
  2. OXYCONTIN [Suspect]
     Dosage: 15 MG (5 M G, 3 IN 1 D)
  3. ELAVIL [Concomitant]
  4. ATIVAN [Concomitant]
  5. TRILAFON [Concomitant]
  6. LIDOCAINE [Concomitant]
  7. ZELNORM [Concomitant]
  8. CELEBREX [Concomitant]
  9. LEVOTHYROXINE SODIUM [Concomitant]
  10. MIRALAX [Concomitant]
  11. NEXIUM [Concomitant]
  12. PLAVIX [Concomitant]
  13. QUININE SULFATE [Concomitant]
  14. TOPROL-XL [Concomitant]
  15. ZOCOR [Concomitant]

REACTIONS (2)
  - CONFUSIONAL STATE [None]
  - DRUG INTERACTION [None]
